FAERS Safety Report 14967059 (Version 1)
Quarter: 2018Q3

REPORT INFORMATION
  Report Type: Spontaneous
  Country: CN (occurrence: CN)
  Receive Date: 20180604
  Receipt Date: 20180604
  Transmission Date: 20181010
  Serious: Yes (Death, Other)
  Sender: FDA-Public Use
  Company Number: CN-CHEPLA-C20180144

PATIENT
  Age: 28 Year
  Sex: Female

DRUGS (8)
  1. ARSENIC TRIOXIDE (ATO) [Suspect]
     Active Substance: ARSENIC TRIOXIDE
     Indication: ACUTE PROMYELOCYTIC LEUKAEMIA
     Dosage: 0.16 MG/KG/D, DAY 1?14
  2. CYTARABINE (ARA?C) [Suspect]
     Active Substance: CYTARABINE
     Indication: ACUTE PROMYELOCYTIC LEUKAEMIA
     Dosage: 100 MG/D, DAY 1?8
  3. HOMOHARRINGTONINE (HHT) [Suspect]
     Active Substance: OMACETAXINE MEPESUCCINATE
     Indication: ACUTE PROMYELOCYTIC LEUKAEMIA
     Dosage: 2.5 MG/MM2/D, DAY 1?7
  4. ATRA [Suspect]
     Active Substance: TRETINOIN
     Indication: ACUTE PROMYELOCYTIC LEUKAEMIA
     Dosage: 40 MG/MM2/D, DAY 1?28
  5. IDARUBICIN [Suspect]
     Active Substance: IDARUBICIN
     Indication: ACUTE PROMYELOCYTIC LEUKAEMIA
     Dosage: 12 MG/MM2/D, DAY 4?6
  6. DAUNORUBICIN (DNR) [Suspect]
     Active Substance: DAUNORUBICIN
     Indication: ACUTE PROMYELOCYTIC LEUKAEMIA
     Dosage: 30 MG/MM2/D, DAY 1?4
  7. CYTARABINE (ARA?C) [Suspect]
     Active Substance: CYTARABINE
     Indication: ACUTE PROMYELOCYTIC LEUKAEMIA
     Dosage: 100 MG/MM2/D, DAY 1?7
  8. ATRA [Suspect]
     Active Substance: TRETINOIN
     Indication: ACUTE PROMYELOCYTIC LEUKAEMIA
     Dosage: 45 MG/MM2/D, DAY 1?7

REACTIONS (8)
  - Enterobacter sepsis [Not Recovered/Not Resolved]
  - Fungal infection [Not Recovered/Not Resolved]
  - Septic shock [Fatal]
  - Platelet count decreased [None]
  - Rhinitis [Not Recovered/Not Resolved]
  - Haemoglobin decreased [None]
  - Anal abscess [Not Recovered/Not Resolved]
  - Drug ineffective [Not Recovered/Not Resolved]
